FAERS Safety Report 7420770-8 (Version None)
Quarter: 2011Q2

REPORT INFORMATION
  Report Type: 
  Country: None (occurrence: None)
  Receive Date: 20110418
  Receipt Date: 20110411
  Transmission Date: 20111010
  Serious: Yes (Hospitalization)
  Sender: FDA-Public Use
  Company Number: DE-SANOFI-AVENTIS-2011SA018442

PATIENT
  Age: 74 Year
  Sex: Male

DRUGS (8)
  1. DOCETAXEL [Suspect]
     Route: 041
     Dates: start: 20110321, end: 20110321
  2. FLUOROURACIL [Suspect]
     Route: 041
     Dates: start: 20110321, end: 20110321
  3. DOCETAXEL [Suspect]
     Route: 041
  4. CISPLATIN [Suspect]
     Route: 041
  5. CETUXIMAB [Suspect]
     Route: 041
  6. FLUOROURACIL [Suspect]
     Route: 041
  7. CETUXIMAB [Suspect]
     Route: 041
     Dates: start: 20110321, end: 20110321
  8. CISPLATIN [Suspect]
     Route: 041
     Dates: start: 20110321, end: 20110321

REACTIONS (5)
  - GENERAL PHYSICAL HEALTH DETERIORATION [None]
  - PNEUMONIA ASPIRATION [None]
  - PANCYTOPENIA [None]
  - FALL [None]
  - CIRCULATORY COLLAPSE [None]
